FAERS Safety Report 26018951 (Version 1)
Quarter: 2025Q4

REPORT INFORMATION
  Report Type: Spontaneous
  Country: CN (occurrence: CN)
  Receive Date: 20251110
  Receipt Date: 20251110
  Transmission Date: 20260117
  Serious: Yes (Death, Life-Threatening)
  Sender: ACCORD
  Company Number: CN-Accord-512029

PATIENT
  Age: 47 Year
  Sex: Female

DRUGS (3)
  1. CISPLATIN [Suspect]
     Active Substance: CISPLATIN
     Indication: Lung adenocarcinoma stage IV
     Dosage: D1-D3 DAY 57 TO DAY 78 4 CYCLES
     Dates: start: 20240214, end: 20240306
  2. PEMETREXED [Suspect]
     Active Substance: PEMETREXED
     Indication: Lung adenocarcinoma stage IV
     Dosage: DAY 1+ DAY 57 TO DAY 78 4 CYCLES
     Dates: start: 20240214, end: 20240306
  3. BEVACIZUMAB [Suspect]
     Active Substance: BEVACIZUMAB
     Indication: Lung adenocarcinoma stage IV
     Dosage: DAY1 DAY 57 TO DAY 78 4 CYCLES
     Dates: start: 20240214, end: 20240306

REACTIONS (5)
  - Vascular pseudoaneurysm [Fatal]
  - Vascular pseudoaneurysm ruptured [Fatal]
  - Haemoptysis [Fatal]
  - Obstructive airways disorder [Fatal]
  - Cardiac arrest [Fatal]

NARRATIVE: CASE EVENT DATE: 20240309
